FAERS Safety Report 21023805 (Version 3)
Quarter: 2022Q3

REPORT INFORMATION
  Report Type: Report from Study
  Country: CA (occurrence: CA)
  Receive Date: 20220629
  Receipt Date: 20220809
  Transmission Date: 20221027
  Serious: Yes (Death, Hospitalization, Other)
  Sender: FDA-Public Use
  Company Number: CA-ABBVIE-22K-028-4451259-00

PATIENT
  Age: 73 Year
  Sex: Male

DRUGS (1)
  1. LUPRON DEPOT [Suspect]
     Active Substance: LEUPROLIDE ACETATE
     Indication: Prostate cancer
     Route: 030
     Dates: start: 20211227

REACTIONS (6)
  - Lung cancer metastatic [Fatal]
  - Hypercalcaemia [Unknown]
  - Humerus fracture [Unknown]
  - Lower urinary tract symptoms [Unknown]
  - Proctalgia [Not Recovered/Not Resolved]
  - Prostatic pain [Unknown]

NARRATIVE: CASE EVENT DATE: 20220101
